FAERS Safety Report 16908156 (Version 1)
Quarter: 2019Q4

REPORT INFORMATION
  Report Type: Spontaneous
  Country: US (occurrence: US)
  Receive Date: 20191011
  Receipt Date: 20191011
  Transmission Date: 20200122
  Serious: Yes (Other)
  Sender: FDA-Public Use
  Company Number: US-PFIZER INC-2019440731

PATIENT
  Age: 64 Year
  Sex: Male
  Weight: 94.35 kg

DRUGS (1)
  1. ADVIL [Suspect]
     Active Substance: IBUPROFEN
     Dosage: UNK

REACTIONS (5)
  - Pain in extremity [Unknown]
  - Intentional product misuse [Unknown]
  - Renal impairment [Unknown]
  - Arthralgia [Unknown]
  - Nerve injury [Unknown]
